FAERS Safety Report 8410984-2 (Version None)
Quarter: 2012Q2

REPORT INFORMATION
  Report Type: 
  Country: None (occurrence: None)
  Receive Date: 20120605
  Receipt Date: 20120530
  Transmission Date: 20120825
  Serious: Yes (Life-Threatening)
  Sender: FDA-Public Use
  Company Number: IT-SANOFI-AVENTIS-2012SA038250

PATIENT
  Age: 83 Year
  Sex: Female

DRUGS (8)
  1. OXYCODONE HYDROCHLORIDE [Concomitant]
     Dosage: STRENGTH; 10/5 MG
  2. LANSOPRAZOLE [Concomitant]
  3. KANRENOL [Concomitant]
     Dosage: STRENGTH; 100 MG
  4. LANOXIN [Concomitant]
     Dosage: STRENGTH; 0.125 MG
  5. TRENTAL [Suspect]
     Route: 048
     Dates: start: 20120519, end: 20120522
  6. ASPIRIN [Concomitant]
     Dosage: STRENGTH; 75 MG
  7. MINITRAN [Concomitant]
     Dosage: STRENGTH; 5 MG/24HR
  8. ZOLOFT [Concomitant]
     Dosage: STRENGTH; 50 MG

REACTIONS (1)
  - ANURIA [None]
